FAERS Safety Report 8842090 (Version 1)
Quarter: 2012Q4

REPORT INFORMATION
  Report Type: 
  Country: US (occurrence: US)
  Receive Date: 20121016
  Receipt Date: 20121016
  Transmission Date: 20130627
  Serious: No
  Sender: FDA-Public Use
  Company Number: US-009507513-1210USA003485

PATIENT
  Age: 58 Year
  Sex: Male

DRUGS (1)
  1. JANUMET XR [Suspect]
     Indication: DIABETES MELLITUS
     Dosage: 100mg-1000mg, qam
     Route: 048
     Dates: start: 20120817

REACTIONS (2)
  - Medication residue [Recovered/Resolved]
  - Inappropriate schedule of drug administration [Unknown]
